FAERS Safety Report 14173101 (Version 2)
Quarter: 2017Q4

REPORT INFORMATION
  Report Type: Report from Study
  Country: None (occurrence: US)
  Receive Date: 20171109
  Receipt Date: 20171117
  Transmission Date: 20180321
  Serious: Yes (Hospitalization, Other)
  Sender: FDA-Public Use
  Company Number: US-ABBVIE-17P-163-2152678-00

PATIENT
  Age: 43 Year
  Sex: Female
  Weight: 71.73 kg

DRUGS (3)
  1. LUPRON DEPOT [Suspect]
     Active Substance: LEUPROLIDE ACETATE
     Route: 030
     Dates: start: 2017
  2. LUPRON DEPOT [Suspect]
     Active Substance: LEUPROLIDE ACETATE
     Route: 030
     Dates: start: 201602
  3. LUPRON DEPOT [Suspect]
     Active Substance: LEUPROLIDE ACETATE
     Indication: ENDOMETRIOSIS
     Route: 030
     Dates: start: 2015

REACTIONS (12)
  - Adhesion [Unknown]
  - Pain [Unknown]
  - Hot flush [Unknown]
  - Endometriosis [Unknown]
  - Uterine leiomyoma [Recovered/Resolved]
  - Menorrhagia [Unknown]
  - Ovarian cyst [Not Recovered/Not Resolved]
  - Abdominal pain [Recovering/Resolving]
  - Hypertension [Recovering/Resolving]
  - Endometrial ablation [Unknown]
  - Uterine leiomyoma [Unknown]
  - Constipation [Not Recovered/Not Resolved]

NARRATIVE: CASE EVENT DATE: 201502
